FAERS Safety Report 6043488-5 (Version None)
Quarter: 2009Q1

REPORT INFORMATION
  Report Type: 
  Country: None (occurrence: None)
  Receive Date: 20090120
  Receipt Date: 20090110
  Transmission Date: 20090719
  Serious: Yes (Death)
  Sender: FDA-Public Use
  Company Number: US-BAYER-200911164GPV

PATIENT
  Age: 83 Year
  Sex: Female

DRUGS (14)
  1. MOXIFLOXACIN HCL [Suspect]
     Indication: CHRONIC OBSTRUCTIVE PULMONARY DISEASE
     Route: 048
  2. LEVOFLOXACIN [Suspect]
     Indication: CHRONIC OBSTRUCTIVE PULMONARY DISEASE
     Dosage: AS USED: 500 MG
     Route: 065
  3. CLONAZEPAM [Concomitant]
     Indication: DRUG USE FOR UNKNOWN INDICATION
     Dosage: TOTAL DAILY DOSE: 1 MG
     Route: 065
  4. GUAIFENESIN [Concomitant]
     Indication: DRUG USE FOR UNKNOWN INDICATION
     Dosage: TOTAL DAILY DOSE: 1200 MG
     Route: 065
  5. LORATADINE [Concomitant]
     Indication: DRUG USE FOR UNKNOWN INDICATION
     Dosage: AS USED: 10 MG
     Route: 065
  6. PAROXETINE [Concomitant]
     Indication: DRUG USE FOR UNKNOWN INDICATION
     Dosage: AS USED: 10 MG
     Route: 065
  7. ZOLPIDEM [Concomitant]
     Indication: DRUG USE FOR UNKNOWN INDICATION
     Dosage: AS USED: 5 MG
     Route: 065
  8. FLUTICASONE PROPIONATE [Concomitant]
     Indication: DRUG USE FOR UNKNOWN INDICATION
     Dosage: TOTAL DAILY DOSE: 440 ?G
     Route: 065
  9. ALBUTEROL [Concomitant]
     Indication: DRUG USE FOR UNKNOWN INDICATION
     Dosage: TOTAL DAILY DOSE: 100 ?G
     Route: 065
  10. TIOTROPIUM [Concomitant]
     Indication: DRUG USE FOR UNKNOWN INDICATION
     Dosage: AS USED: 18 ?G
     Route: 065
  11. PANTOPRAZOLE SODIUM [Concomitant]
     Indication: DRUG USE FOR UNKNOWN INDICATION
     Dosage: AS USED: 40 MG
     Route: 065
  12. WARFARIN SODIUM [Concomitant]
     Indication: DRUG USE FOR UNKNOWN INDICATION
     Route: 065
  13. CEFAZOLIN [Concomitant]
     Indication: PROPHYLAXIS
     Dosage: AS USED: 1 G
     Route: 042
  14. ENOXAPARIN SODIUM [Concomitant]
     Indication: DRUG USE FOR UNKNOWN INDICATION
     Dosage: TOTAL DAILY DOSE: 30 MG
     Route: 058

REACTIONS (3)
  - DIARRHOEA [None]
  - PSEUDOMEMBRANOUS COLITIS [None]
  - PYREXIA [None]
